FAERS Safety Report 8942351 (Version 2)
Quarter: 2012Q4

REPORT INFORMATION
  Report Type: Spontaneous
  Country: US (occurrence: None)
  Receive Date: 20121123
  Receipt Date: 20121210
  Transmission Date: 20130627
  Serious: Yes (Life-Threatening, Hospitalization)
  Sender: FDA-Public Use
  Company Number: 2012US-004458

PATIENT
  Age: 92 Year
  Sex: Male
  Weight: 75.5 kg

DRUGS (10)
  1. OMONTYS (PEGINESATIDE) SOLUTION FOR INJECTION [Suspect]
     Indication: NEPHROGENIC ANAEMIA
     Dosage: 2 mg,  Q 4 weeks,  Intravenous
     Route: 042
     Dates: start: 20121113, end: 20121113
  2. EPOGEN (EPOETIN ALFA) [Concomitant]
  3. HEPARIN (HEPARIN) [Concomitant]
  4. VENOFER (SACCHARATED IRON OXIDE) [Concomitant]
  5. SENSIPAR (CINACALCET HYDROCHLORIDE) [Concomitant]
  6. MULTIVITAMINS [Concomitant]
  7. ASPIRIN (ACETYLSALICYLIC ACID) [Concomitant]
  8. AMLODIPINE (AMLODIPINE) [Concomitant]
  9. LASIX (FUROSEMIDE) [Concomitant]
  10. ZEMPLAR (PARICALCITOL) [Concomitant]

REACTIONS (8)
  - Respiratory arrest [None]
  - Pupil fixed [None]
  - Pallor [None]
  - Unresponsive to stimuli [None]
  - Acute myocardial infarction [None]
  - Hyperhidrosis [None]
  - Heart rate increased [None]
  - Blood pressure systolic decreased [None]
